FAERS Safety Report 4459226-3 (Version None)
Quarter: 2004Q3

REPORT INFORMATION
  Report Type: 
  Country: None (occurrence: None)
  Receive Date: 20040927
  Receipt Date: 20040916
  Transmission Date: 20050211
  Serious: Yes (Hospitalization)
  Sender: FDA-Public Use
  Company Number: JP-JNJFOC-20040701938

PATIENT
  Sex: Female

DRUGS (11)
  1. ITRIZOLE [Suspect]
     Route: 049
  2. ITRIZOLE [Suspect]
     Indication: INFECTION PROPHYLAXIS
     Route: 049
  3. VINBLASTINE SULFATE [Interacting]
     Indication: HODGKIN'S DISEASE
     Route: 042
  4. DOXORUBICIN HCL [Concomitant]
     Route: 042
  5. BLEOMYCIN HYDROCHLORIDE [Concomitant]
     Route: 065
  6. DACARBAZINE [Concomitant]
     Route: 042
  7. GRANISETRON [Concomitant]
  8. HYDROCORTISONE SODIUM PHOSPHATE [Concomitant]
  9. MAGNESIUM OXIDE [Concomitant]
  10. SULFAMETHOXAZOLE + TRIMETHOPRIM [Concomitant]
     Route: 049
     Dates: start: 20040518, end: 20040609
  11. SULFAMETHOXAZOLE + TRIMETHOPRIM [Concomitant]
     Route: 049
     Dates: start: 20040518, end: 20040609

REACTIONS (3)
  - DRUG INTERACTION [None]
  - ILEUS PARALYTIC [None]
  - NEUTROPENIA [None]
